FAERS Safety Report 24781103 (Version 1)
Quarter: 2024Q4

REPORT INFORMATION
  Report Type: Spontaneous
  Country: US (occurrence: US)
  Receive Date: 20241227
  Receipt Date: 20241227
  Transmission Date: 20250115
  Serious: Yes (Death)
  Sender: SPECGX
  Company Number: US-SPECGX-T202402439

PATIENT
  Sex: Male

DRUGS (1)
  1. BUPRENORPHINE\NALOXONE [Suspect]
     Active Substance: BUPRENORPHINE\NALOXONE
     Indication: Drug withdrawal syndrome
     Dosage: 4 MILLIGRAM (INITIAL DOSE)
     Route: 060

REACTIONS (1)
  - Myocardial infarction [Fatal]
